FAERS Safety Report 9311657 (Version 1)
Quarter: 2013Q1

REPORT INFORMATION
  Report Type: Spontaneous
  Country: DK (occurrence: None)
  Receive Date: 20130213
  Receipt Date: 20130213
  Transmission Date: 20140127
  Serious: Yes (Life-Threatening, Hospitalization)
  Sender: FDA-Public Use
  Company Number: 2012MA012357

PATIENT
  Age: 21 Year
  Sex: Male

DRUGS (2)
  1. IBUPROFEN ORAL SUSPENSION USP, 100 MG/5 ML (RX) (ALPHARMA) (IBUPROFEN) [Suspect]
     Indication: PAIN IN EXTREMITY
     Route: 048
     Dates: start: 20120420, end: 20120830
  2. PARACETAMOL [Concomitant]

REACTIONS (4)
  - Anaemia [None]
  - Pyrexia [None]
  - Mouth ulceration [None]
  - Aplastic anaemia [None]
